FAERS Safety Report 25678351 (Version 6)
Quarter: 2025Q4

REPORT INFORMATION
  Report Type: Report from Study
  Country: EU (occurrence: EU)
  Receive Date: 20250813
  Receipt Date: 20251230
  Transmission Date: 20260118
  Serious: Yes (Hospitalization)
  Sender: ABBVIE
  Company Number: EU-ABBVIE-6410160

PATIENT
  Age: 75 Year
  Sex: Male
  Weight: 80 kg

DRUGS (3)
  1. FOSCARBIDOPA\FOSLEVODOPA [Suspect]
     Active Substance: FOSCARBIDOPA\FOSLEVODOPA
     Indication: Parkinson^s disease
     Dosage: (SD: 0.6ML), CRN: 0.26 ML/H, CR: 0.40 ML/H, CRH: 0.42 ML/H, ED: 0.15 ML.
     Route: 058
     Dates: start: 20250414, end: 2025
  2. FOSCARBIDOPA\FOSLEVODOPA [Suspect]
     Active Substance: FOSCARBIDOPA\FOSLEVODOPA
     Dosage: CRL: 0.28 ML/H, CR: 0.44 ML/H, CRH: 0.46 ML/H, ED: 0.15 ML.
     Route: 058
     Dates: start: 2025, end: 2025
  3. FOSCARBIDOPA\FOSLEVODOPA [Suspect]
     Active Substance: FOSCARBIDOPA\FOSLEVODOPA
     Dosage: CRN: 0.26 ML/H, CR: 0.44 ML/H, CRH: 0.46 ML/H, ED: 0.15 ML
     Route: 058
     Dates: start: 2025

REACTIONS (3)
  - Renal failure [Unknown]
  - Urinary tract infection [Recovered/Resolved]
  - Urinary tract infection [Recovered/Resolved]

NARRATIVE: CASE EVENT DATE: 20250101
